FAERS Safety Report 10557689 (Version 1)
Quarter: 2014Q4

REPORT INFORMATION
  Report Type: Spontaneous
  Country: US (occurrence: US)
  Receive Date: 20141031
  Receipt Date: 20141031
  Transmission Date: 20150529
  Serious: Yes (Other)
  Sender: FDA-Public Use
  Company Number: US-FRI-1000071956

PATIENT
  Sex: Female

DRUGS (2)
  1. FETZIMA [Suspect]
     Active Substance: LEVOMILNACIPRAN HYDROCHLORIDE
     Dosage: 40 MG
     Route: 048
  2. FETZIMA [Suspect]
     Active Substance: LEVOMILNACIPRAN HYDROCHLORIDE
     Dosage: 20 MG
     Route: 048

REACTIONS (7)
  - Dizziness [Unknown]
  - Irritability [Unknown]
  - Feeling jittery [Unknown]
  - Hallucination [Unknown]
  - Nausea [Unknown]
  - Suicidal ideation [Unknown]
  - Palpitations [Unknown]
